FAERS Safety Report 6124918-7 (Version None)
Quarter: 2009Q1

REPORT INFORMATION
  Report Type: 
  Country: None (occurrence: None)
  Receive Date: 20090319
  Receipt Date: 20090312
  Transmission Date: 20090719
  Serious: Yes (Hospitalization)
  Sender: FDA-Public Use
  Company Number: US-B.I. PHARMACEUTICALS,INC./RIDGEFIELD-2009-BP-03172BP

PATIENT
  Sex: Female

DRUGS (6)
  1. SPIRIVA [Suspect]
     Indication: CHRONIC OBSTRUCTIVE PULMONARY DISEASE
     Dosage: 18MCG
     Route: 055
     Dates: start: 20060101
  2. SINGULAIR [Suspect]
     Indication: HYPERSENSITIVITY
     Dates: start: 20060101
  3. PRILOSEC [Concomitant]
     Indication: HIATUS HERNIA
     Dates: start: 20020101
  4. KLONOPIN [Concomitant]
     Indication: ANXIETY
     Dates: start: 20050101
  5. DILTIAZEM [Concomitant]
     Indication: HYPERTENSION
     Dates: start: 20050101
  6. NITROFURANTOIN [Concomitant]
     Indication: URINARY RETENTION
     Dates: start: 20050101

REACTIONS (4)
  - BACK PAIN [None]
  - EXOSTOSIS [None]
  - INTERVERTEBRAL DISC PROTRUSION [None]
  - NECK PAIN [None]
